FAERS Safety Report 19666781 (Version 1)
Quarter: 2021Q3

REPORT INFORMATION
  Report Type: Spontaneous
  Country: IT (occurrence: IT)
  Receive Date: 20210806
  Receipt Date: 20210806
  Transmission Date: 20211014
  Serious: Yes (Other)
  Sender: FDA-Public Use
  Company Number: IT-GYP-000056

PATIENT
  Age: 4 Year

DRUGS (2)
  1. PREDNISONE. [Suspect]
     Active Substance: PREDNISONE
     Indication: BEHCET^S SYNDROME
     Route: 065
  2. COLCHICINE. [Suspect]
     Active Substance: COLCHICINE
     Indication: BEHCET^S SYNDROME
     Route: 065

REACTIONS (4)
  - Drug ineffective [Unknown]
  - Behcet^s syndrome [Recovered/Resolved]
  - Product use in unapproved indication [Unknown]
  - Disease recurrence [Recovered/Resolved]
